FAERS Safety Report 16783055 (Version 1)
Quarter: 2019Q3

REPORT INFORMATION
  Report Type: Spontaneous
  Country: JP (occurrence: JP)
  Receive Date: 20190906
  Receipt Date: 20190906
  Transmission Date: 20191005
  Serious: Yes (Hospitalization)
  Sender: FDA-Public Use
  Company Number: PHJP2019JP011512

PATIENT

DRUGS (2)
  1. EXELON PATCH [Suspect]
     Active Substance: RIVASTIGMINE
     Dosage: 4.6 MG, QD (PATCH 5 CM2, 9 MG RIVASTIGMINE BASE)
     Route: 062
  2. EXELON PATCH [Suspect]
     Active Substance: RIVASTIGMINE
     Indication: DEMENTIA
     Dosage: 9.5 MG, QD (PATCH 10 CM2, 18 MG RIVASTIGMINE BASE)
     Route: 062

REACTIONS (2)
  - Nausea [Unknown]
  - Blood cholinesterase decreased [Unknown]
